FAERS Safety Report 12311036 (Version 2)
Quarter: 2016Q3

REPORT INFORMATION
  Report Type: Report from Study
  Country: BR (occurrence: BR)
  Receive Date: 20160427
  Receipt Date: 20160705
  Transmission Date: 20161109
  Serious: Yes (Hospitalization, Other)
  Sender: FDA-Public Use
  Company Number: BR-BAYER-2016-008784

PATIENT
  Age: 24 Year
  Sex: Female

DRUGS (2)
  1. BETAFERON [Suspect]
     Active Substance: INTERFERON BETA-1B
     Indication: MULTIPLE SCLEROSIS
     Dosage: UNK
     Dates: start: 20160401
  2. BETAFERON [Suspect]
     Active Substance: INTERFERON BETA-1B
     Indication: MULTIPLE SCLEROSIS
     Dosage: 1 ML, QOD
     Route: 058
     Dates: start: 201404, end: 201511

REACTIONS (5)
  - Nephrolithiasis [Not Recovered/Not Resolved]
  - Stillbirth [None]
  - Exposure during pregnancy [Recovered/Resolved]
  - Fallopian tube disorder [None]
  - Renal pain [Recovered/Resolved]

NARRATIVE: CASE EVENT DATE: 201511
